FAERS Safety Report 19009105 (Version 1)
Quarter: 2021Q1

REPORT INFORMATION
  Report Type: Spontaneous
  Country: TW (occurrence: TW)
  Receive Date: 20210316
  Receipt Date: 20210316
  Transmission Date: 20210420
  Serious: Yes (Other)
  Sender: FDA-Public Use
  Company Number: TW-BAUSCH-BL-2021-007880

PATIENT
  Age: 49 Year
  Sex: Male

DRUGS (16)
  1. FLUMETHASONE. [Concomitant]
     Active Substance: FLUMETHASONE
     Indication: CORNEAL DEGENERATION
     Route: 061
     Dates: start: 2007
  2. CYCLOSPORINE. [Concomitant]
     Active Substance: CYCLOSPORINE
     Indication: KERATIC PRECIPITATES
  3. TIMOPTOL XE [Concomitant]
     Active Substance: TIMOLOL MALEATE
     Indication: CORNEAL DEGENERATION
     Route: 061
     Dates: start: 2007
  4. CYCLOSPORINE. [Concomitant]
     Active Substance: CYCLOSPORINE
     Indication: CORNEAL DEGENERATION
     Route: 061
     Dates: start: 2007
  5. TOBRAMYCIN. [Concomitant]
     Active Substance: TOBRAMYCIN
     Indication: KERATIC PRECIPITATES
  6. VALACYCLOVIR [Suspect]
     Active Substance: VALACYCLOVIR HYDROCHLORIDE
     Indication: CORNEAL DEGENERATION
     Route: 048
     Dates: start: 2007
  7. VALACYCLOVIR [Suspect]
     Active Substance: VALACYCLOVIR HYDROCHLORIDE
     Indication: CYTOMEGALOVIRUS INFECTION REACTIVATION
  8. ACYCLOVIR. [Concomitant]
     Active Substance: ACYCLOVIR
     Indication: CORNEAL DEGENERATION
     Dosage: FOR THE PAST YEAR
     Route: 048
     Dates: start: 2006
  9. TIMOPTOL XE [Concomitant]
     Active Substance: TIMOLOL MALEATE
     Indication: KERATIC PRECIPITATES
  10. VALACYCLOVIR [Suspect]
     Active Substance: VALACYCLOVIR HYDROCHLORIDE
     Indication: HERPES SIMPLEX
  11. FLUMETHASONE. [Concomitant]
     Active Substance: FLUMETHASONE
     Indication: KERATIC PRECIPITATES
  12. VALACYCLOVIR [Suspect]
     Active Substance: VALACYCLOVIR HYDROCHLORIDE
     Indication: KERATIC PRECIPITATES
     Route: 048
     Dates: start: 2008
  13. TOBRAMYCIN. [Concomitant]
     Active Substance: TOBRAMYCIN
     Indication: CORNEAL DEGENERATION
     Dosage: POSTOPERATIVELY
     Route: 061
     Dates: start: 2007
  14. DEXAMETHASONE. [Suspect]
     Active Substance: DEXAMETHASONE
     Indication: CORNEAL DEGENERATION
     Route: 061
     Dates: start: 2007
  15. DEXAMETHASONE. [Suspect]
     Active Substance: DEXAMETHASONE
     Indication: KERATIC PRECIPITATES
  16. ACYCLOVIR. [Concomitant]
     Active Substance: ACYCLOVIR
     Indication: KERATIC PRECIPITATES
     Route: 048
     Dates: start: 2007, end: 2007

REACTIONS (4)
  - Cytomegalovirus infection reactivation [Recovered/Resolved]
  - Therapy non-responder [Unknown]
  - Corneal endotheliitis [Unknown]
  - Herpes simplex [Not Recovered/Not Resolved]
